FAERS Safety Report 24337769 (Version 3)
Quarter: 2025Q2

REPORT INFORMATION
  Report Type: Spontaneous
  Country: DE (occurrence: DE)
  Receive Date: 20240919
  Receipt Date: 20250622
  Transmission Date: 20250717
  Serious: Yes (Hospitalization, Other)
  Sender: AUROBINDO
  Company Number: DE-BIOMO-14869

PATIENT
  Age: 72 Year
  Sex: Female

DRUGS (3)
  1. FLECAINIDE [Interacting]
     Active Substance: FLECAINIDE
     Indication: Atrial fibrillation
     Route: 065
  2. LACOSAMIDE [Interacting]
     Active Substance: LACOSAMIDE
     Indication: Epilepsy
     Route: 065
  3. TOLVAPTAN [Concomitant]
     Active Substance: TOLVAPTAN
     Indication: Inappropriate antidiuretic hormone secretion
     Route: 065

REACTIONS (11)
  - Electrocardiogram QRS complex prolonged [Recovered/Resolved]
  - Syncope [Recovered/Resolved]
  - Atrial fibrillation [Recovered/Resolved]
  - Drug interaction [Recovered/Resolved]
  - Bradycardia [Recovered/Resolved]
  - Confusional state [Recovered/Resolved]
  - Conduction disorder [Recovered/Resolved]
  - Sinus node dysfunction [Unknown]
  - Defect conduction intraventricular [Recovered/Resolved]
  - Hyponatraemia [Recovered/Resolved]
  - Acute kidney injury [Unknown]
